FAERS Safety Report 12517293 (Version 2)
Quarter: 2016Q4

REPORT INFORMATION
  Report Type: Spontaneous
  Country: JP (occurrence: JP)
  Receive Date: 20160630
  Receipt Date: 20161107
  Transmission Date: 20170207
  Serious: Yes (Other)
  Sender: FDA-Public Use
  Company Number: JP-PFIZER INC-2016261409

PATIENT
  Age: 68 Year
  Sex: Male

DRUGS (4)
  1. VALSARTAN. [Concomitant]
     Active Substance: VALSARTAN
     Dosage: UNK
  2. INLYTA [Suspect]
     Active Substance: AXITINIB
     Indication: RENAL CELL CARCINOMA
     Dosage: 8 MG, DAILY
     Route: 048
     Dates: start: 2012, end: 201604
  3. NIFEDIPINE. [Concomitant]
     Active Substance: NIFEDIPINE
     Dosage: UNK
  4. INLYTA [Suspect]
     Active Substance: AXITINIB
     Dosage: 6 MG, DAILY
     Route: 048

REACTIONS (4)
  - Hypertension [Unknown]
  - Decreased appetite [Unknown]
  - Fatigue [Unknown]
  - Nephrotic syndrome [Not Recovered/Not Resolved]
